FAERS Safety Report 9885684 (Version 1)
Quarter: 2014Q1

REPORT INFORMATION
  Report Type: Spontaneous
  Country: IT (occurrence: IT)
  Receive Date: 20140210
  Receipt Date: 20140210
  Transmission Date: 20141002
  Serious: Yes (Death)
  Sender: FDA-Public Use
  Company Number: IT-WATSON-2014-01765

PATIENT
  Age: 74 Year
  Sex: Male
  Weight: 70 kg

DRUGS (2)
  1. GEMCITABINE (UNKNOWN) [Suspect]
     Indication: SQUAMOUS CELL CARCINOMA OF LUNG
     Dosage: 400 MG, CYCLICAL
     Route: 042
     Dates: start: 20131123, end: 20131218
  2. CARBOPLATIN (UNKNOWN) [Suspect]
     Indication: SQUAMOUS CELL CARCINOMA OF LUNG
     Dosage: 1880 MG, CYCLICAL
     Route: 042
     Dates: start: 20131122, end: 20131217

REACTIONS (3)
  - Acute myocardial infarction [Fatal]
  - Cardiogenic shock [Fatal]
  - Electrocardiogram ST segment elevation [Fatal]
